FAERS Safety Report 21093678 (Version 2)
Quarter: 2022Q3

REPORT INFORMATION
  Report Type: Spontaneous
  Country: US (occurrence: US)
  Receive Date: 20220718
  Receipt Date: 20220729
  Transmission Date: 20221026
  Serious: No
  Sender: FDA-Public Use
  Company Number: US-AMGEN-USASP2022119881

PATIENT
  Age: 51 Year
  Sex: Female
  Weight: 61.678 kg

DRUGS (1)
  1. AIMOVIG [Suspect]
     Active Substance: ERENUMAB-AOOE
     Indication: Migraine
     Dosage: UNK, QMO
     Route: 058
     Dates: start: 2018

REACTIONS (2)
  - Device difficult to use [Unknown]
  - Underdose [Unknown]

NARRATIVE: CASE EVENT DATE: 20220713
